FAERS Safety Report 4588393-6 (Version None)
Quarter: 2005Q1

REPORT INFORMATION
  Report Type: 
  Country: None (occurrence: None)
  Receive Date: 20050215
  Receipt Date: 20050215
  Transmission Date: 20050727
  Serious: Yes (Other)
  Sender: FDA-Public Use
  Company Number: None

PATIENT
  Age: 28 Year
  Sex: Female

DRUGS (4)
  1. KETEK [Suspect]
     Indication: BRONCHITIS
     Dosage: 2 TABLETS DAILY BY MOUTH
     Dates: start: 20050201
  2. KETEK [Suspect]
     Indication: SINUSITIS
     Dosage: 2 TABLETS DAILY BY MOUTH
     Dates: start: 20050201
  3. NASONEX [Concomitant]
  4. MAXIFED [Concomitant]

REACTIONS (2)
  - BREAST DISCHARGE [None]
  - PRURITUS [None]
